FAERS Safety Report 9701167 (Version 1)
Quarter: 2013Q4

REPORT INFORMATION
  Report Type: Spontaneous
  Country: US (occurrence: US)
  Receive Date: 20131121
  Receipt Date: 20131121
  Transmission Date: 20140711
  Serious: No
  Sender: FDA-Public Use
  Company Number: US-GILEAD-2008-0015939

PATIENT
  Sex: Female
  Weight: 61.23 kg

DRUGS (7)
  1. LETAIRIS [Suspect]
     Indication: PULMONARY ARTERIAL HYPERTENSION
     Route: 048
     Dates: start: 20080119
  2. FEXOFENADINE [Concomitant]
     Route: 048
  3. FIBERCON [Concomitant]
     Route: 048
  4. LASIX [Concomitant]
     Route: 048
  5. COUMADIN [Concomitant]
     Route: 048
  6. MULTIVITAMIN [Concomitant]
     Route: 048
  7. CALCIUM [Concomitant]
     Route: 048

REACTIONS (2)
  - Epistaxis [Unknown]
  - Nasal congestion [Unknown]
